FAERS Safety Report 22078544 (Version 4)
Quarter: 2024Q3

REPORT INFORMATION
  Report Type: Spontaneous
  Country: US (occurrence: US)
  Receive Date: 20230309
  Receipt Date: 20240717
  Transmission Date: 20241016
  Serious: No
  Sender: SANOFI AVENTIS
  Company Number: US-SA-SAC20230309000281

PATIENT
  Age: 74 Year
  Sex: Female

DRUGS (4)
  1. DUPIXENT [Suspect]
     Active Substance: DUPILUMAB
     Indication: Seborrhoeic keratosis
     Dosage: 600 MG, 1X
     Route: 058
     Dates: start: 202211, end: 202211
  2. DUPIXENT [Suspect]
     Active Substance: DUPILUMAB
     Indication: Follicular cystitis
     Dosage: 300 MG, QOW
     Route: 058
     Dates: start: 2022
  3. DUPIXENT [Suspect]
     Active Substance: DUPILUMAB
     Indication: Dermatitis atopic
  4. OZEMPIC [Concomitant]
     Active Substance: SEMAGLUTIDE

REACTIONS (5)
  - Abdominal discomfort [Unknown]
  - COVID-19 [Unknown]
  - Dermatitis atopic [Not Recovered/Not Resolved]
  - Drug effect less than expected [Not Recovered/Not Resolved]
  - Product use in unapproved indication [Unknown]

NARRATIVE: CASE EVENT DATE: 20221101
